FAERS Safety Report 23631247 (Version 1)
Quarter: 2024Q1

REPORT INFORMATION
  Report Type: Spontaneous
  Country: GB (occurrence: GB)
  Receive Date: 20240314
  Receipt Date: 20240314
  Transmission Date: 20240409
  Serious: Yes (Hospitalization, Other)
  Sender: FDA-Public Use
  Company Number: None

PATIENT
  Age: 49 Year
  Sex: Female

DRUGS (3)
  1. OMEPRAZOLE [Interacting]
     Active Substance: OMEPRAZOLE
     Indication: Gastrooesophageal reflux disease
     Dosage: 40 MG DAILY (ONCE IN THE MORNING, ONCE IN THE EVENING); BEGAN 15 YEARS AGO;
  2. BUTYLSCOPOLAMINE BROMIDE [Interacting]
     Active Substance: BUTYLSCOPOLAMINE BROMIDE
  3. ACETAMINOPHEN [Concomitant]
     Active Substance: ACETAMINOPHEN

REACTIONS (5)
  - Cholelithiasis [Unknown]
  - Constipation [Unknown]
  - Adrenal mass [Unknown]
  - Empyema [Unknown]
  - Drug interaction [Unknown]
